FAERS Safety Report 10389721 (Version 3)
Quarter: 2014Q4

REPORT INFORMATION
  Report Type: Spontaneous
  Country: GB (occurrence: GB)
  Receive Date: 20140818
  Receipt Date: 20141027
  Transmission Date: 20150528
  Serious: Yes (Disabling, Other)
  Sender: FDA-Public Use
  Company Number: GB-JNJFOC-20140803722

PATIENT
  Age: 83 Year
  Sex: Male

DRUGS (5)
  1. ZYTIGA [Suspect]
     Active Substance: ABIRATERONE ACETATE
     Indication: PROSTATE CANCER
     Route: 048
     Dates: start: 20140610, end: 20140721
  2. DOXAZOSIN [Concomitant]
     Active Substance: DOXAZOSIN\DOXAZOSIN MESYLATE
     Route: 065
  3. PREDNISOLONE. [Concomitant]
     Active Substance: PREDNISOLONE
     Route: 065
  4. LUPRON DEPOT [Concomitant]
     Active Substance: LEUPROLIDE ACETATE
     Route: 065
  5. NEBIVOLOL [Concomitant]
     Active Substance: NEBIVOLOL
     Route: 065

REACTIONS (1)
  - Retinal vein thrombosis [Not Recovered/Not Resolved]

NARRATIVE: CASE EVENT DATE: 20140721
